FAERS Safety Report 10635877 (Version 3)
Quarter: 2015Q1

REPORT INFORMATION
  Report Type: Report from Study
  Country: DE (occurrence: DE)
  Receive Date: 20141205
  Receipt Date: 20150123
  Transmission Date: 20150720
  Serious: Yes (Death)
  Sender: FDA-Public Use
  Company Number: DE-ABBVIE-14P-062-1316955-00

PATIENT
  Age: 64 Year
  Sex: Male
  Weight: 75 kg

DRUGS (2)
  1. TRENANTONE [Suspect]
     Active Substance: LEUPROLIDE ACETATE
     Indication: PROSTATE CANCER METASTATIC
     Route: 065
     Dates: start: 20120516, end: 20120516
  2. ANTIANDROGENS [Concomitant]
     Active Substance: UNSPECIFIED INGREDIENT
     Indication: PRODUCT USED FOR UNKNOWN INDICATION

REACTIONS (1)
  - Death [Fatal]

NARRATIVE: CASE EVENT DATE: 20121015
